FAERS Safety Report 5382461-7 (Version None)
Quarter: 2007Q3

REPORT INFORMATION
  Report Type: 
  Country: None (occurrence: None)
  Receive Date: 20070705
  Receipt Date: 20060808
  Transmission Date: 20080115
  Serious: Yes (Hospitalization)
  Sender: FDA-Public Use
  Company Number: WAES 0608USA01712

PATIENT
  Sex: Male

DRUGS (2)
  1. HYZAAR [Suspect]
     Dosage: 50-12.5 MG, DAILY; PO
     Route: 048
     Dates: start: 20050101
  2. ZETIA [Concomitant]

REACTIONS (1)
  - CEREBROVASCULAR ACCIDENT [None]
